FAERS Safety Report 5349310-4 (Version None)
Quarter: 2007Q2

REPORT INFORMATION
  Report Type: 
  Country: None (occurrence: None)
  Receive Date: 20070607
  Receipt Date: 20070531
  Transmission Date: 20071010
  Serious: Yes (Life-Threatening)
  Sender: FDA-Public Use
  Company Number: B0473341A

PATIENT
  Age: 71 Year
  Sex: Female

DRUGS (11)
  1. AUGMENTIN '125' [Suspect]
     Indication: ERYSIPELAS
     Route: 048
     Dates: start: 20070412, end: 20070416
  2. PREVISCAN [Suspect]
     Indication: HYPERTENSIVE HEART DISEASE
     Route: 048
     Dates: end: 20070416
  3. TENORMIN [Suspect]
     Indication: ESSENTIAL HYPERTENSION
     Route: 048
     Dates: end: 20070416
  4. PRAVASTATIN [Suspect]
     Indication: HYPERTENSIVE HEART DISEASE
     Route: 048
     Dates: end: 20070416
  5. ACETYLSALICYLIC ACID SRT [Suspect]
     Indication: HYPERTENSIVE HEART DISEASE
     Route: 048
     Dates: end: 20070416
  6. NUREFLEX [Suspect]
     Dosage: 300MG PER DAY
     Route: 048
  7. DAFALGAN [Concomitant]
     Route: 048
  8. ATACAND [Concomitant]
  9. DESLORATADINE [Concomitant]
  10. LAMALINE [Concomitant]
  11. NON STEROIDAL ANTIINFLAMMATORY [Concomitant]

REACTIONS (8)
  - BRAIN OEDEMA [None]
  - HAEMATOMA [None]
  - INTERNATIONAL NORMALISED RATIO ABNORMAL [None]
  - LOSS OF CONSCIOUSNESS [None]
  - MYDRIASIS [None]
  - NERVOUS SYSTEM DISORDER [None]
  - PUPILS UNEQUAL [None]
  - RENAL FAILURE [None]
